FAERS Safety Report 12788859 (Version 1)
Quarter: 2016Q3

REPORT INFORMATION
  Report Type: Not Available
  Country: FR (occurrence: FR)
  Receive Date: 20160928
  Receipt Date: 20160928
  Transmission Date: 20161109
  Serious: Yes (Hospitalization)
  Sender: FDA-Public Use
  Company Number: FR-MUNDIPHARMA DS AND PHARMACOVIGILANCE-GBR-2016-0040712

PATIENT
  Age: 79 Year
  Sex: Female

DRUGS (13)
  1. INEXIUM                            /01479302/ [Concomitant]
     Active Substance: ESOMEPRAZOLE MAGNESIUM
  2. OXYCONTIN [Suspect]
     Active Substance: OXYCODONE HYDROCHLORIDE
     Indication: PAIN IN EXTREMITY
     Dosage: 1 DF, BID
     Route: 048
     Dates: start: 20160801, end: 20160812
  3. LANTUS [Concomitant]
     Active Substance: INSULIN GLARGINE
  4. LASILIX                            /00032601/ [Suspect]
     Active Substance: FUROSEMIDE
     Indication: HYPERTENSION
     Dosage: 1.5 DF, DAILY
     Route: 048
     Dates: end: 20160812
  5. KARDEGIC [Concomitant]
     Active Substance: ASPIRIN LYSINE
  6. APIDRA [Concomitant]
     Active Substance: INSULIN GLULISINE
  7. METFORMINE [Concomitant]
     Active Substance: METFORMIN HYDROCHLORIDE
  8. TAHOR [Concomitant]
     Active Substance: ATORVASTATIN CALCIUM
  9. TEMESTA                            /00273201/ [Concomitant]
     Active Substance: LORAZEPAM
  10. DIFFU K [Concomitant]
     Active Substance: POTASSIUM CHLORIDE
  11. OXYNORMORO COMPRIME ORODISPERSIBLE 5 MG [Suspect]
     Active Substance: OXYCODONE HYDROCHLORIDE
     Indication: PAIN IN EXTREMITY
     Dosage: 1 DF, QID
     Route: 048
     Dates: start: 20160801, end: 20160812
  12. VALSARTAN. [Suspect]
     Active Substance: VALSARTAN
     Indication: HYPERTENSION
     Dosage: 80 MG, DAILY
     Route: 048
  13. PAROXETINE HYDROCHLORIDE. [Concomitant]
     Active Substance: PAROXETINE HYDROCHLORIDE

REACTIONS (2)
  - Acute kidney injury [Recovered/Resolved]
  - Overdose [Unknown]

NARRATIVE: CASE EVENT DATE: 20160812
